FAERS Safety Report 6038694-X (Version None)
Quarter: 2009Q1

REPORT INFORMATION
  Report Type: 
  Country: None (occurrence: None)
  Receive Date: 20090115
  Receipt Date: 20080925
  Transmission Date: 20090719
  Serious: No
  Sender: FDA-Public Use
  Company Number: US-BAYER-200813925BCC

PATIENT
  Age: 79 Year
  Sex: Female
  Weight: 79 kg

DRUGS (8)
  1. ALEVE [Suspect]
     Indication: ARTHRITIS
     Dates: start: 20060101
  2. LEVOTHYROXINE SODIUM [Concomitant]
  3. PRAVASTATIN SODIUM [Concomitant]
  4. PROPRANOLOL HCL W/HYDROCHLOROTHIAZIDE [Concomitant]
  5. NIZATIDINE [Concomitant]
  6. GLUCOSAMINE [Concomitant]
  7. CHONDROITIN [Concomitant]
  8. MULTI-VITAMIN [Concomitant]

REACTIONS (1)
  - NEPHROLITHIASIS [None]
